FAERS Safety Report 25794400 (Version 1)
Quarter: 2025Q3

REPORT INFORMATION
  Report Type: Spontaneous
  Country: CN (occurrence: CN)
  Receive Date: 20250912
  Receipt Date: 20250912
  Transmission Date: 20251021
  Serious: Yes (Disabling, Other)
  Sender: GILEAD
  Company Number: CN-GILEAD-2025-0727351

PATIENT
  Age: 48 Year
  Sex: Male
  Weight: 55 kg

DRUGS (1)
  1. EPCLUSA [Suspect]
     Active Substance: SOFOSBUVIR\VELPATASVIR
     Indication: Chronic hepatitis C
     Dosage: 1 DOSAGE FORM, QD (400 MG)
     Route: 048
     Dates: start: 20250805, end: 20250825

REACTIONS (1)
  - Drug-induced liver injury [Recovering/Resolving]

NARRATIVE: CASE EVENT DATE: 20250825
